FAERS Safety Report 4943874-8 (Version None)
Quarter: 2006Q1

REPORT INFORMATION
  Report Type: 
  Country: None (occurrence: None)
  Receive Date: 20060310
  Receipt Date: 20060302
  Transmission Date: 20060701
  Serious: Yes (Other)
  Sender: FDA-Public Use
  Company Number: CHWYE444703MAR06

PATIENT
  Sex: Female

DRUGS (4)
  1. EFFEXOR [Suspect]
     Indication: BIPOLAR I DISORDER
     Dosage: 300 MG 1X PER 1 DAY; 150 MG 1X PER 1 DAY
     Route: 048
     Dates: end: 20060301
  2. EFFEXOR [Suspect]
     Indication: BIPOLAR I DISORDER
     Dosage: 300 MG 1X PER 1 DAY; 150 MG 1X PER 1 DAY
     Route: 048
     Dates: start: 20060301
  3. LITHIUM (LITHIUM) [Concomitant]
  4. LORAZEPAM [Concomitant]

REACTIONS (3)
  - CONFUSIONAL STATE [None]
  - DISTURBANCE IN ATTENTION [None]
  - DRUG LEVEL INCREASED [None]
